FAERS Safety Report 23288400 (Version 2)
Quarter: 2024Q1

REPORT INFORMATION
  Report Type: Spontaneous
  Country: None (occurrence: US)
  Receive Date: 20231212
  Receipt Date: 20240106
  Transmission Date: 20240410
  Serious: No
  Sender: FDA-Public Use
  Company Number: US-Ascend Therapeutics US, LLC-2149258

PATIENT
  Age: 44 Year
  Sex: Female

DRUGS (2)
  1. ANDROGEL [Suspect]
     Active Substance: TESTOSTERONE
     Indication: Product used for unknown indication
     Route: 061
  2. TESTOSTERONE [Suspect]
     Active Substance: TESTOSTERONE
     Route: 061

REACTIONS (5)
  - Hirsutism [Unknown]
  - Dysphonia [Unknown]
  - Amenorrhoea [Unknown]
  - Exposure via partner [None]
  - Blood testosterone increased [Unknown]
